FAERS Safety Report 23332511 (Version 1)
Quarter: 2023Q4

REPORT INFORMATION
  Report Type: Spontaneous
  Country: PT (occurrence: None)
  Receive Date: 20231222
  Receipt Date: 20231222
  Transmission Date: 20240110
  Serious: Yes (Hospitalization)
  Sender: FDA-Public Use
  Company Number: 2023A285067

PATIENT
  Age: 39 Year
  Sex: Female

DRUGS (15)
  1. QUETIAPINE [Suspect]
     Active Substance: QUETIAPINE
     Route: 048
  2. QUETIAPINE [Suspect]
     Active Substance: QUETIAPINE
     Route: 048
  3. BUDESONIDE [Suspect]
     Active Substance: BUDESONIDE
     Dosage: 200 MCG 2 ID
  4. SERTRALINE [Suspect]
     Active Substance: SERTRALINE HYDROCHLORIDE
  5. VALPROIC ACID [Suspect]
     Active Substance: VALPROIC ACID
  6. RISPERIDONE [Suspect]
     Active Substance: RISPERIDONE
  7. LORAZEPAM [Suspect]
     Active Substance: LORAZEPAM
  8. DIAZEPAM [Suspect]
     Active Substance: DIAZEPAM
  9. HALOPERIDOL [Suspect]
     Active Substance: HALOPERIDOL
     Route: 048
  10. ALBUTEROL\IPRATROPIUM BROMIDE [Suspect]
     Active Substance: ALBUTEROL\IPRATROPIUM BROMIDE
     Dosage: 0.5/0.25 MG ID
  11. ACETYLCYSTEINE [Suspect]
     Active Substance: ACETYLCYSTEINE
     Dosage: 600 MG ID
  12. BACLOFEN [Suspect]
     Active Substance: BACLOFEN
  13. LACTULOSE [Suspect]
     Active Substance: LACTULOSE
     Dosage: 10 MG 3 ID
  14. FERROUS SULFATE [Suspect]
     Active Substance: FERROUS SULFATE
     Dosage: 329.7 MG ID
  15. FENTANYL [Suspect]
     Active Substance: FENTANYL\FENTANYL CITRATE
     Dosage: 12.5 MCG/H
     Route: 062

REACTIONS (1)
  - Neuroleptic malignant syndrome [Unknown]
